FAERS Safety Report 5809348-7 (Version None)
Quarter: 2008Q3

REPORT INFORMATION
  Report Type: 
  Country: None (occurrence: None)
  Receive Date: 20080714
  Receipt Date: 20080702
  Transmission Date: 20090109
  Serious: Yes (Other)
  Sender: FDA-Public Use
  Company Number: PHHY2008JP09878

PATIENT
  Sex: Male

DRUGS (12)
  1. NEORAL [Suspect]
     Indication: DERMATOMYOSITIS
     Dosage: 200 MG/DAY
     Route: 048
     Dates: start: 20070625, end: 20070731
  2. TACROLIMUS [Suspect]
     Indication: DERMATOMYOSITIS
     Dosage: 3 MG/DAY
     Dates: start: 20070801
  3. PREDONINE [Suspect]
     Indication: DERMATOMYOSITIS
     Dosage: 1 MG/KG/D
     Dates: start: 20070609
  4. PREDONINE [Suspect]
     Dosage: 15 MG/DAY
  5. BENAMBAX [Concomitant]
     Indication: INTERSTITIAL LUNG DISEASE
     Dosage: 300 DFPER DAY
     Dates: start: 20070723, end: 20070815
  6. BAKTAR [Concomitant]
     Indication: INTERSTITIAL LUNG DISEASE
     Dosage: UNK
     Route: 048
     Dates: start: 20070821, end: 20071101
  7. STARSIS [Concomitant]
     Indication: DIABETES MELLITUS
     Dosage: UNK
     Route: 048
     Dates: start: 20070622, end: 20070630
  8. AMARYL [Concomitant]
     Indication: DIABETES MELLITUS
     Dosage: 1 MG PER DAY
     Route: 048
     Dates: start: 20070701, end: 20070702
  9. ONEALFA [Concomitant]
     Dosage: 1.0 UG PER DAY
     Route: 048
     Dates: end: 20070708
  10. FOSAMAX [Concomitant]
     Dosage: 35 MG PER DAY
     Route: 048
     Dates: end: 20070919
  11. GASTER [Concomitant]
     Indication: GASTRITIS
     Dosage: 40 MG PER DAY
  12. TAKEPRON [Concomitant]
     Indication: GASTRITIS
     Dosage: 30 MG PER DAY
     Dates: start: 20070616, end: 20070716

REACTIONS (7)
  - ALANINE AMINOTRANSFERASE INCREASED [None]
  - ASPARTATE AMINOTRANSFERASE INCREASED [None]
  - BLOOD LACTATE DEHYDROGENASE INCREASED [None]
  - GAMMA-GLUTAMYLTRANSFERASE INCREASED [None]
  - HEPATIC FUNCTION ABNORMAL [None]
  - PNEUMATOSIS INTESTINALIS [None]
  - PNEUMOMEDIASTINUM [None]
